FAERS Safety Report 10188232 (Version 1)
Quarter: 2014Q2

REPORT INFORMATION
  Report Type: Spontaneous
  Country: GB (occurrence: None)
  Receive Date: 20140520
  Receipt Date: 20140520
  Transmission Date: 20141212
  Serious: Yes (Hospitalization)
  Sender: FDA-Public Use
  Company Number: AUR-APL-2014-05754

PATIENT
  Age: 82 Year
  Sex: Male
  Weight: 40 kg

DRUGS (2)
  1. LORAZEPAM [Concomitant]
  2. SERTRALINE [Suspect]
     Indication: DEPRESSION
     Route: 048
     Dates: start: 20140324, end: 20140328

REACTIONS (4)
  - Catatonia [None]
  - Muscle rigidity [None]
  - Mutism [None]
  - Blepharospasm [None]
